FAERS Safety Report 25014816 (Version 3)
Quarter: 2025Q2

REPORT INFORMATION
  Report Type: Spontaneous
  Country: PR (occurrence: PR)
  Receive Date: 20250226
  Receipt Date: 20250618
  Transmission Date: 20250717
  Serious: No
  Sender: PFIZER
  Company Number: PR-PFIZER INC-202500044291

PATIENT
  Age: 56 Year
  Sex: Female

DRUGS (6)
  1. XELJANZ XR [Suspect]
     Active Substance: TOFACITINIB CITRATE
     Dosage: 11 MG, DAILY
     Dates: start: 20250128, end: 20250228
  2. XELJANZ XR [Suspect]
     Active Substance: TOFACITINIB CITRATE
     Dosage: 11 MG (ONE TABLET)
     Dates: start: 2025
  3. ATIVAN [Concomitant]
     Active Substance: LORAZEPAM
  4. NEURONTIN [Concomitant]
     Active Substance: GABAPENTIN
  5. RELAFEN [Concomitant]
     Active Substance: NABUMETONE
  6. ZOLOFT [Concomitant]
     Active Substance: SERTRALINE HYDROCHLORIDE

REACTIONS (12)
  - Hypertension [Not Recovered/Not Resolved]
  - Headache [Unknown]
  - Dyspnoea [Unknown]
  - Chest pain [Unknown]
  - Malaise [Unknown]
  - Chest X-ray abnormal [Unknown]
  - Blood potassium increased [Unknown]
  - Dizziness [Unknown]
  - Tremor [Unknown]
  - Chest discomfort [Unknown]
  - Osteoporosis [Unknown]
  - Product dose omission in error [Unknown]

NARRATIVE: CASE EVENT DATE: 20250101
